FAERS Safety Report 9288035 (Version 1)
Quarter: 2013Q2

REPORT INFORMATION
  Report Type: Spontaneous
  Country: GB (occurrence: None)
  Receive Date: 20130509
  Receipt Date: 20130509
  Transmission Date: 20140414
  Serious: Yes (Disabling, Other)
  Sender: FDA-Public Use
  Company Number: GER/UKI/13/0029443

PATIENT
  Age: 34 Year
  Sex: Male
  Weight: 88.9 kg

DRUGS (2)
  1. CIPROFLOXACIN 500MG [Suspect]
     Indication: CROHN^S DISEASE
     Route: 048
     Dates: start: 20080101, end: 20130401
  2. LOPERAMIDE (LOPERAMIDE) [Concomitant]

REACTIONS (2)
  - Product formulation issue [None]
  - Drug ineffective [None]
